FAERS Safety Report 15460461 (Version 2)
Quarter: 2018Q4

REPORT INFORMATION
  Report Type: Report from Study
  Country: US (occurrence: US)
  Receive Date: 20181003
  Receipt Date: 20181023
  Transmission Date: 20190204
  Serious: Yes (Life-Threatening)
  Sender: FDA-Public Use
  Company Number: US-TESARO, INC-US-2018TSO03972

PATIENT
  Age: 71 Year
  Sex: Female

DRUGS (2)
  1. ZEJULA [Suspect]
     Active Substance: NIRAPARIB
     Dosage: UNK (REDUCED DOSE)
     Route: 048
     Dates: start: 20180827
  2. ZEJULA [Suspect]
     Active Substance: NIRAPARIB
     Indication: OVARIAN CANCER
     Dosage: 200 MG, QD
     Route: 048
     Dates: start: 20180724, end: 20180813

REACTIONS (5)
  - Platelet count decreased [Not Recovered/Not Resolved]
  - Decreased appetite [Recovering/Resolving]
  - Nausea [Recovering/Resolving]
  - Carbohydrate antigen 125 increased [Not Recovered/Not Resolved]
  - Fatigue [Not Recovered/Not Resolved]

NARRATIVE: CASE EVENT DATE: 2018
